FAERS Safety Report 10024918 (Version 2)
Quarter: 2014Q1

REPORT INFORMATION
  Report Type: Spontaneous
  Country: US (occurrence: US)
  Receive Date: 20140320
  Receipt Date: 20140324
  Transmission Date: 20141002
  Serious: No
  Sender: FDA-Public Use
  Company Number: US-009507513-1403USA000952

PATIENT
  Sex: Female

DRUGS (2)
  1. EMEND [Suspect]
     Dosage: 80 MG, (TRI-PACK 1 BOTTLE OF 3)
     Route: 048
     Dates: start: 20140227
  2. EMEND [Suspect]
     Dosage: UNK
     Route: 048

REACTIONS (4)
  - Inappropriate schedule of drug administration [Unknown]
  - Accidental exposure to product [Unknown]
  - Product quality issue [Unknown]
  - No adverse event [Unknown]
